FAERS Safety Report 13689574 (Version 1)
Quarter: 2017Q2

REPORT INFORMATION
  Report Type: Spontaneous
  Country: US (occurrence: US)
  Receive Date: 20170623
  Receipt Date: 20170623
  Transmission Date: 20170830
  Serious: No
  Sender: FDA-Public Use
  Company Number: None

PATIENT
  Sex: Female

DRUGS (2)
  1. IBRANCE [Suspect]
     Active Substance: PALBOCICLIB
     Indication: BREAST CANCER
     Dosage: 100 MG DAILY; 3 WEEKS ON/1 WEEK OFF BY MOUTH
     Route: 048
     Dates: start: 20170619
  2. IBRANCE [Suspect]
     Active Substance: PALBOCICLIB
     Indication: BREAST CANCER
     Dosage: 125 MG DAILY; 3 WEEKS ON/1 WEEK OFF BY MOUTH
     Route: 048
     Dates: start: 20170503, end: 20170515

REACTIONS (5)
  - Bone marrow failure [None]
  - Multiple allergies [None]
  - Cough [None]
  - Gastric disorder [None]
  - Fatigue [None]
